FAERS Safety Report 6252158-X (Version None)
Quarter: 2009Q2

REPORT INFORMATION
  Report Type: 
  Country: None (occurrence: None)
  Receive Date: 20090630
  Receipt Date: 20071224
  Transmission Date: 20091009
  Serious: Yes (Hospitalization)
  Sender: FDA-Public Use
  Company Number: US-ROCHE-639494

PATIENT
  Sex: Male

DRUGS (12)
  1. ENFUVIRTIDE [Suspect]
     Route: 065
     Dates: start: 20041011, end: 20061216
  2. ENFUVIRTIDE [Suspect]
     Route: 065
     Dates: start: 20061220, end: 20071224
  3. ENFUVIRTIDE [Suspect]
     Route: 065
     Dates: start: 20080110, end: 20080201
  4. EPIVIR [Concomitant]
     Dosage: FREQUENCY REPORTED AS QD
     Dates: start: 20041011, end: 20061120
  5. EPIVIR [Concomitant]
     Dates: start: 20061210, end: 20061215
  6. KALETRA [Concomitant]
     Dates: start: 20041011, end: 20060707
  7. NORVIR [Concomitant]
     Dates: start: 20060707, end: 20071224
  8. PREZISTA [Concomitant]
     Dates: start: 20060707, end: 20071224
  9. CIPRO [Concomitant]
     Dates: start: 20050109, end: 20050114
  10. CIPRO [Concomitant]
     Dates: start: 20061005, end: 20061103
  11. FLAGYL [Concomitant]
     Dates: start: 20050109, end: 20050114
  12. ROCEPHIN [Concomitant]
     Route: 042

REACTIONS (1)
  - CHOLELITHIASIS [None]
